FAERS Safety Report 8984937 (Version 2)
Quarter: 2013Q1

REPORT INFORMATION
  Report Type: Spontaneous
  Country: US (occurrence: US)
  Receive Date: 20121226
  Receipt Date: 20130125
  Transmission Date: 20140127
  Serious: Yes (Other)
  Sender: FDA-Public Use
  Company Number: US-PFIZER INC-2012326085

PATIENT
  Sex: Female

DRUGS (2)
  1. LYRICA [Suspect]
     Indication: CONVULSION
     Dosage: UNK
     Dates: start: 2005
  2. LYRICA [Suspect]
     Dosage: UNK
     Dates: start: 20121220

REACTIONS (3)
  - Drug ineffective [Unknown]
  - Dizziness [Unknown]
  - Emotional disorder [Unknown]
